FAERS Safety Report 10310166 (Version 1)
Quarter: 2014Q3

REPORT INFORMATION
  Report Type: Report from Study
  Country: US (occurrence: US)
  Receive Date: 20140717
  Receipt Date: 20140717
  Transmission Date: 20150326
  Serious: Yes (Other)
  Sender: FDA-Public Use
  Company Number: US-ROCHE-1436094

PATIENT
  Age: 13 Year
  Sex: Male
  Weight: 34.8 kg

DRUGS (2)
  1. NUTROPIN [Suspect]
     Active Substance: SOMATROPIN
     Indication: GROWTH HORMONE DEFICIENCY
     Route: 058
     Dates: start: 201208
  2. VITAMIN D3 [Concomitant]
     Active Substance: CHOLECALCIFEROL
     Dosage: VITAMIN D 50000 IU -ONCE WEEKLY FOR 8 WEEKS
     Route: 065
     Dates: start: 20140117

REACTIONS (5)
  - Tachycardia [Unknown]
  - Vitamin D decreased [Unknown]
  - Corrective lens user [Unknown]
  - Headache [Unknown]
  - Heart rate irregular [Unknown]

NARRATIVE: CASE EVENT DATE: 20140103
